FAERS Safety Report 8060465-3 (Version None)
Quarter: 2012Q1

REPORT INFORMATION
  Report Type: 
  Country: None (occurrence: None)
  Receive Date: 20120120
  Receipt Date: 20120118
  Transmission Date: 20120608
  Serious: Yes (Other)
  Sender: FDA-Public Use
  Company Number: JP-GLAXOSMITHKLINE-B0776524A

PATIENT
  Age: 81 Year
  Sex: Male

DRUGS (1)
  1. ZOVIRAX [Suspect]
     Indication: KERATITIS HERPETIC
     Route: 031

REACTIONS (1)
  - VISUAL IMPAIRMENT [None]
